FAERS Safety Report 6045066-0 (Version None)
Quarter: 2009Q1

REPORT INFORMATION
  Report Type: 
  Country: None (occurrence: None)
  Receive Date: 20090121
  Receipt Date: 20090109
  Transmission Date: 20090719
  Serious: Yes (Hospitalization)
  Sender: FDA-Public Use
  Company Number: GA-PFIZER INC-2008080713

PATIENT

DRUGS (2)
  1. SALAZOPYRINE [Suspect]
     Indication: RHEUMATOID ARTHRITIS
     Dosage: 200 MG, 2X/DAY
     Route: 048
     Dates: start: 20060110
  2. VOLTARENE [Suspect]
     Indication: RHEUMATOID ARTHRITIS
     Route: 048
     Dates: start: 20050301

REACTIONS (3)
  - ANGIOEDEMA [None]
  - HEPATITIS [None]
  - STEVENS-JOHNSON SYNDROME [None]
